FAERS Safety Report 11520884 (Version 2)
Quarter: 2015Q3

REPORT INFORMATION
  Report Type: Spontaneous
  Country: US (occurrence: US)
  Receive Date: 20150918
  Receipt Date: 20150925
  Transmission Date: 20151125
  Serious: Yes (Life-Threatening, Hospitalization)
  Sender: FDA-Public Use
  Company Number: US-SA-2015SA141964

PATIENT
  Age: 39 Year
  Sex: Male

DRUGS (2)
  1. CLOMID [Suspect]
     Active Substance: CLOMIPHENE CITRATE
     Indication: SUICIDE ATTEMPT
     Route: 065
  2. CLOMID [Suspect]
     Active Substance: CLOMIPHENE CITRATE
     Indication: HYPOGONADISM
     Route: 065

REACTIONS (15)
  - Fatigue [Recovered/Resolved]
  - Suicidal ideation [Recovered/Resolved]
  - Suicide attempt [Recovering/Resolving]
  - Muscular weakness [Recovering/Resolving]
  - Product use issue [Unknown]
  - Depression [Recovered/Resolved]
  - Insomnia [Recovered/Resolved]
  - Apathy [Recovered/Resolved]
  - Gun shot wound [Recovering/Resolving]
  - Mood altered [Recovered/Resolved]
  - Increased appetite [Recovered/Resolved]
  - Nerve injury [Recovering/Resolving]
  - Disturbance in attention [Recovered/Resolved]
  - Social avoidant behaviour [Recovered/Resolved]
  - Hypovolaemic shock [Recovering/Resolving]
